FAERS Safety Report 25697826 (Version 1)
Quarter: 2025Q3

REPORT INFORMATION
  Report Type: Report from Study
  Country: US (occurrence: US)
  Receive Date: 20250819
  Receipt Date: 20250819
  Transmission Date: 20251021
  Serious: Yes (Other)
  Sender: ELI LILLY AND COMPANY
  Company Number: US-ELI_LILLY_AND_COMPANY-US202508005392

PATIENT
  Age: 79 Year

DRUGS (2)
  1. RETEVMO [Suspect]
     Active Substance: SELPERCATINIB
     Indication: Thyroid cancer metastatic
     Route: 065
  2. PEMBROLIZUMAB [Suspect]
     Active Substance: PEMBROLIZUMAB
     Indication: Thyroid cancer metastatic
     Route: 065

REACTIONS (1)
  - Cardiotoxicity [Unknown]
